FAERS Safety Report 5070723-2 (Version None)
Quarter: 2006Q3

REPORT INFORMATION
  Report Type: 
  Country: None (occurrence: None)
  Receive Date: 20060804
  Receipt Date: 20051024
  Transmission Date: 20061208
  Serious: No
  Sender: FDA-Public Use
  Company Number: US-GLAXOSMITHKLINE-A0579280A

PATIENT
  Age: 77 Year
  Sex: Male

DRUGS (3)
  1. NICORETTE [Suspect]
  2. ALBUTEROL SPIROS [Concomitant]
  3. INSULIN NOS [Concomitant]

REACTIONS (2)
  - DRUG ABUSER [None]
  - INTENTIONAL DRUG MISUSE [None]
